FAERS Safety Report 21419994 (Version 1)
Quarter: 2022Q4

REPORT INFORMATION
  Report Type: Spontaneous
  Country: CN (occurrence: CN)
  Receive Date: 20221007
  Receipt Date: 20221007
  Transmission Date: 20230113
  Serious: Yes (Other)
  Sender: FDA-Public Use
  Company Number: CN-STRIDES ARCOLAB LIMITED-2022SP012693

PATIENT
  Age: 43 Year
  Sex: Female

DRUGS (4)
  1. DEXAMETHASONE [Suspect]
     Active Substance: DEXAMETHASONE
     Indication: Precursor T-lymphoblastic leukaemia acute
     Dosage: 40 MILLIGRAM (PART OF HYPER-CVAD REGIMEN; RECEIVED ON DAYS 1, 4, 11 AND 14)
     Route: 065
  2. DOXORUBICIN [Suspect]
     Active Substance: DOXORUBICIN
     Indication: Precursor T-lymphoblastic leukaemia acute
     Dosage: 50 MILLIGRAM/SQ. METER (PART OF HYPER-CVAD REGIMEN; RECEIVED ON 4 DAY)
     Route: 042
  3. CYCLOPHOSPHAMIDE [Suspect]
     Active Substance: CYCLOPHOSPHAMIDE
     Indication: Precursor T-lymphoblastic leukaemia acute
     Dosage: 300 MILLIGRAM/SQ. METER EVERY 3 HOURS (PART OF HYPER-CVAD REGIMEN; ON EVERY 12 H; RECEIVED SIX DOSES
     Route: 042
  4. VINCRISTINE [Suspect]
     Active Substance: VINCRISTINE
     Indication: Precursor T-lymphoblastic leukaemia acute
     Dosage: 2 MILLIGRAM (PART OF HYPER-CVAD REGIMEN; RECEIVED ON DAYS 4 AND 11)
     Route: 042

REACTIONS (2)
  - Febrile neutropenia [Unknown]
  - Treatment failure [Unknown]
